FAERS Safety Report 5933369-7 (Version None)
Quarter: 2008Q4

REPORT INFORMATION
  Report Type: 
  Country: None (occurrence: None)
  Receive Date: 20081028
  Receipt Date: 20081021
  Transmission Date: 20090506
  Serious: Yes (Other)
  Sender: FDA-Public Use
  Company Number: CA-PFIZER INC-2008088993

PATIENT
  Sex: Female

DRUGS (1)
  1. CLINDAMYCIN HYDROCHLORIDE [Suspect]
     Dates: start: 20080718

REACTIONS (2)
  - CYSTITIS ESCHERICHIA [None]
  - PSEUDOMEMBRANOUS COLITIS [None]
